FAERS Safety Report 7767913-4 (Version None)
Quarter: 2011Q3

REPORT INFORMATION
  Report Type: 
  Country: None (occurrence: None)
  Receive Date: 20110922
  Receipt Date: 20110420
  Transmission Date: 20111222
  Serious: No
  Sender: FDA-Public Use
  Company Number: US-ASTRAZENECA-2011SE22655

PATIENT
  Age: 37 Year
  Sex: Female

DRUGS (8)
  1. SEROQUEL [Suspect]
     Indication: HALLUCINATION, AUDITORY
     Route: 048
  2. SEROQUEL [Suspect]
     Indication: BIPOLAR DISORDER
     Route: 048
  3. SEROQUEL [Suspect]
     Route: 048
     Dates: start: 20100101
  4. PROZAC [Concomitant]
     Route: 048
  5. HYDROXYZINE HYDROCHLORIDE [Concomitant]
     Route: 048
  6. SEROQUEL [Suspect]
     Indication: SLEEP DISORDER
     Route: 048
  7. SEROQUEL [Suspect]
     Route: 048
     Dates: start: 20100101
  8. SEROQUEL [Suspect]
     Route: 048
     Dates: start: 20100101

REACTIONS (3)
  - IRRITABILITY [None]
  - WRONG DRUG ADMINISTERED [None]
  - MOOD SWINGS [None]
